FAERS Safety Report 25681002 (Version 2)
Quarter: 2025Q3

REPORT INFORMATION
  Report Type: Report from Study
  Country: US (occurrence: US)
  Receive Date: 20250814
  Receipt Date: 20250909
  Transmission Date: 20251021
  Serious: Yes (Other)
  Sender: ALEXION PHARMACEUTICALS
  Company Number: US-AstraZeneca-CH-00927907A

PATIENT
  Age: 71 Year
  Sex: Female

DRUGS (2)
  1. STRENSIQ [Suspect]
     Active Substance: ASFOTASE ALFA
     Indication: Hypophosphatasia
     Route: 065
  2. COSENTYX [Concomitant]
     Active Substance: SECUKINUMAB
     Route: 065

REACTIONS (13)
  - Systemic lupus erythematosus [Unknown]
  - Feeling abnormal [Unknown]
  - Depressed mood [Unknown]
  - Fall [Not Recovered/Not Resolved]
  - Back injury [Unknown]
  - Limb injury [Unknown]
  - Back pain [Unknown]
  - Arthralgia [Unknown]
  - Mobility decreased [Unknown]
  - Fatigue [Unknown]
  - Impaired healing [Unknown]
  - Skin ulcer [Unknown]
  - Foot deformity [Unknown]

NARRATIVE: CASE EVENT DATE: 20250701
